FAERS Safety Report 8420438-5 (Version None)
Quarter: 2012Q2

REPORT INFORMATION
  Report Type: 
  Country: None (occurrence: None)
  Receive Date: 20120607
  Receipt Date: 20120601
  Transmission Date: 20120825
  Serious: Yes (Other)
  Sender: FDA-Public Use
  Company Number: CN-ABBOTT-12P-035-0942848-00

PATIENT
  Age: 7 Year
  Sex: Female

DRUGS (4)
  1. VALPROIC ACID [Suspect]
     Route: 048
     Dates: end: 20120401
  2. VALPROIC ACID [Suspect]
     Indication: EPILEPSY
     Route: 048
     Dates: start: 20110301
  3. LAMOTRIGINE [Suspect]
     Indication: EPILEPSY
     Route: 048
     Dates: start: 20110301
  4. VALPROIC ACID [Suspect]
     Route: 048
     Dates: start: 20120401

REACTIONS (4)
  - PRODUCT COUNTERFEIT [None]
  - EYE MOVEMENT DISORDER [None]
  - EPILEPSY [None]
  - LOSS OF CONSCIOUSNESS [None]
